FAERS Safety Report 7669915-5 (Version None)
Quarter: 2011Q3

REPORT INFORMATION
  Report Type: 
  Country: None (occurrence: None)
  Receive Date: 20110808
  Receipt Date: 20110801
  Transmission Date: 20111222
  Serious: Yes (Other)
  Sender: FDA-Public Use
  Company Number: PHHO2011BR13156

PATIENT
  Age: 30 Year
  Sex: Male
  Weight: 78.503 kg

DRUGS (8)
  1. PREDNISONE [Suspect]
     Indication: RENAL TRANSPLANT
     Dosage: 7.5 MG, QD
     Route: 048
     Dates: start: 20100206, end: 20100513
  2. SIROLIMUS [Suspect]
     Indication: PROPHYLAXIS AGAINST TRANSPLANT REJECTION
     Dosage: 2 MG, QD
     Route: 048
     Dates: start: 20091219, end: 20100513
  3. PREDNISONE [Suspect]
     Dosage: 7.5 MG, QD
     Route: 048
     Dates: start: 20100618
  4. TACROLIMUS [Suspect]
     Dosage: 5 MG, BID
     Route: 048
     Dates: start: 20100514, end: 20100802
  5. TACROLIMUS [Suspect]
     Dosage: 2 MG, BID
     Route: 048
     Dates: start: 20100803
  6. PREDNISONE [Suspect]
     Dosage: 10 MG, QD
     Route: 048
     Dates: start: 20100514, end: 20100716
  7. TACROLIMUS [Suspect]
     Indication: RENAL TRANSPLANT
     Dosage: UNK
     Route: 048
     Dates: start: 20090616, end: 20091230
  8. MYCOPHENOLATE MOFETIL [Suspect]
     Indication: RENAL TRANSPLANT
     Dosage: 720 MG, BID
     Route: 048
     Dates: start: 20090616

REACTIONS (4)
  - KIDNEY FIBROSIS [None]
  - BLOOD CREATININE INCREASED [None]
  - RENAL TUBULAR ATROPHY [None]
  - KIDNEY TRANSPLANT REJECTION [None]
